FAERS Safety Report 24117075 (Version 2)
Quarter: 2025Q1

REPORT INFORMATION
  Report Type: Report from Study
  Country: US (occurrence: US)
  Receive Date: 20240722
  Receipt Date: 20250114
  Transmission Date: 20250409
  Serious: Yes (Other)
  Sender: RECORDATI
  Company Number: US-ORPHANEU-2024004236

PATIENT

DRUGS (9)
  1. ISTURISA [Suspect]
     Active Substance: OSILODROSTAT PHOSPHATE
     Indication: Cushing^s syndrome
     Dosage: 2 MG, BID
     Route: 048
     Dates: end: 20240220
  2. ISTURISA [Suspect]
     Active Substance: OSILODROSTAT PHOSPHATE
     Dosage: 4 MG, BID
     Route: 048
     Dates: start: 2024, end: 20240430
  3. ISTURISA [Suspect]
     Active Substance: OSILODROSTAT PHOSPHATE
     Dosage: 3 MG, BID
     Route: 048
     Dates: start: 2024, end: 20240521
  4. ISTURISA [Suspect]
     Active Substance: OSILODROSTAT PHOSPHATE
     Dosage: 3 MG, BID
     Route: 048
     Dates: start: 20240522, end: 20240522
  5. ISTURISA [Suspect]
     Active Substance: OSILODROSTAT PHOSPHATE
     Dosage: 3 MG, BID
     Route: 048
     Dates: start: 2024, end: 20240912
  6. ISTURISA [Suspect]
     Active Substance: OSILODROSTAT PHOSPHATE
     Dosage: 3 MG, BID
     Route: 048
  7. LEXAPRO [Concomitant]
     Active Substance: ESCITALOPRAM OXALATE
     Indication: Product used for unknown indication
     Dosage: 20 MG, QD (TABLET 20 MG) DAILY
     Route: 048
     Dates: start: 20240131
  8. LOVENOX [Concomitant]
     Active Substance: ENOXAPARIN SODIUM
     Indication: Product used for unknown indication
     Dosage: 40MG/0.4 ML, BID (INJECTION SOLUTION PREFILLED)
     Dates: start: 20240131, end: 20240711
  9. METFORMIN HYDROCHLORIDE [Concomitant]
     Active Substance: METFORMIN HYDROCHLORIDE
     Indication: Product used for unknown indication
     Dosage: 1000 MG, BID (TABLET 1000 MG)
     Route: 048
     Dates: start: 20240131

REACTIONS (1)
  - Neuroendocrine tumour of the lung [Not Recovered/Not Resolved]

NARRATIVE: CASE EVENT DATE: 20240101
